FAERS Safety Report 6920988-4 (Version None)
Quarter: 2010Q3

REPORT INFORMATION
  Report Type: 
  Country: None (occurrence: None)
  Receive Date: 20100812
  Receipt Date: 20100802
  Transmission Date: 20110219
  Serious: Yes (Hospitalization, Disabling)
  Sender: FDA-Public Use
  Company Number: CL-ROCHE-662204

PATIENT
  Age: 13 Year
  Sex: Male

DRUGS (5)
  1. ACTEMRA [Suspect]
     Dosage: FORM: INFUSION
     Route: 042
     Dates: start: 20091001
  2. CYCLOSPORINE [Concomitant]
     Indication: RHEUMATOID ARTHRITIS
  3. METHOTREXATE [Concomitant]
     Indication: RHEUMATOID ARTHRITIS
  4. CORTICOSTEROIDS [Concomitant]
     Dosage: DRUG REPORTED AS CORTICOIDS
     Dates: end: 20091201
  5. CORTICOSTEROIDS [Concomitant]
     Dates: start: 20091201

REACTIONS (6)
  - DEHYDRATION [None]
  - DIARRHOEA [None]
  - HEADACHE [None]
  - NAUSEA [None]
  - OSTEONECROSIS [None]
  - VOMITING [None]
